FAERS Safety Report 24987357 (Version 1)
Quarter: 2025Q1

REPORT INFORMATION
  Report Type: Spontaneous
  Country: US (occurrence: US)
  Receive Date: 20250219
  Receipt Date: 20250219
  Transmission Date: 20250409
  Serious: No
  Sender: PFIZER
  Company Number: US-PFIZER INC-202500037642

PATIENT

DRUGS (5)
  1. PAXLOVID [Suspect]
     Active Substance: NIRMATRELVIR\RITONAVIR
     Indication: COVID-19 treatment
     Dates: start: 20250215
  2. VITAMIN A [Concomitant]
     Active Substance: VITAMIN A
  3. VITAMIN D NOS [Concomitant]
     Active Substance: CHOLECALCIFEROL\ERGOCALCIFEROL
  4. VITAMIN K [Concomitant]
     Active Substance: PHYTONADIONE
  5. PROGESTERONE [Concomitant]
     Active Substance: PROGESTERONE
     Dosage: NATURAL PROGESTERONE 500 MG, AT NIGHT BEFORE BED

REACTIONS (2)
  - Nausea [Unknown]
  - Dizziness [Unknown]

NARRATIVE: CASE EVENT DATE: 20250216
